FAERS Safety Report 13367785 (Version 1)
Quarter: 2017Q1

REPORT INFORMATION
  Report Type: Spontaneous
  Country: US (occurrence: US)
  Receive Date: 20170323
  Receipt Date: 20170323
  Transmission Date: 20170429
  Serious: Yes (Other)
  Sender: FDA-Public Use
  Company Number: None

PATIENT
  Age: 23 Year
  Sex: Female
  Weight: 55.35 kg

DRUGS (3)
  1. HUMIRA [Suspect]
     Active Substance: ADALIMUMAB
     Indication: RHEUMATOID ARTHRITIS
     Dosage: ?          QUANTITY:1 INJECTION(S);OTHER FREQUENCY:ONCE EVERY 2 WEEKS;?
     Route: 058
  2. TAZORAC [Concomitant]
     Active Substance: TAZAROTENE
  3. VITAMIN A [Concomitant]
     Active Substance: VITAMIN A

REACTIONS (2)
  - Back pain [None]
  - Gait disturbance [None]

NARRATIVE: CASE EVENT DATE: 20170101
